FAERS Safety Report 8483800 (Version 9)
Quarter: 2017Q4

REPORT INFORMATION
  Report Type: Spontaneous
  Country: US (occurrence: US)
  Receive Date: 20120329
  Receipt Date: 20171121
  Transmission Date: 20180321
  Serious: Yes (Disabling, Other)
  Sender: FDA-Public Use
  Company Number: US-009507513-1203USA03476

PATIENT
  Sex: Male
  Weight: 69.84 kg

DRUGS (4)
  1. FOSAMAX [Suspect]
     Active Substance: ALENDRONATE SODIUM
     Indication: OSTEOPENIA
     Dosage: UNK
     Route: 048
     Dates: start: 200501, end: 201001
  2. CELEBREX [Concomitant]
     Active Substance: CELECOXIB
     Dosage: UNK
     Dates: start: 2004, end: 2005
  3. ALENDRONATE SODIUM. [Suspect]
     Active Substance: ALENDRONATE SODIUM
     Indication: OSTEOPENIA
     Dosage: 70 MG, QW
     Route: 048
     Dates: start: 20090828, end: 201005
  4. FOSAMAX PLUS D [Suspect]
     Active Substance: ALENDRONATE SODIUM\CHOLECALCIFEROL
     Indication: OSTEOPENIA
     Dosage: 70 MG/2800 IU
     Route: 048
     Dates: start: 200501, end: 201001

REACTIONS (46)
  - Osteoporosis [Unknown]
  - Depression [Unknown]
  - Fall [Unknown]
  - Bladder outlet obstruction [Not Recovered/Not Resolved]
  - Eczema [Unknown]
  - Spinal column injury [Unknown]
  - Joint injury [Recovering/Resolving]
  - Plantar fascial fibromatosis [Unknown]
  - Bone pain [Unknown]
  - Bursitis [Unknown]
  - Vitamin D deficiency [Unknown]
  - Calcium deficiency [Unknown]
  - Pollakiuria [Unknown]
  - Contusion [Unknown]
  - Decreased interest [Unknown]
  - Bursitis [Unknown]
  - Neck injury [Recovering/Resolving]
  - Femoral neck fracture [Recovered/Resolved]
  - Stress fracture [Not Recovered/Not Resolved]
  - Tooth fracture [Unknown]
  - Chest injury [Unknown]
  - Intervertebral disc degeneration [Unknown]
  - Erectile dysfunction [Not Recovered/Not Resolved]
  - Benign prostatic hyperplasia [Unknown]
  - Arthralgia [Not Recovered/Not Resolved]
  - Drug hypersensitivity [Unknown]
  - Femur fracture [Unknown]
  - Renal cyst [Unknown]
  - Fall [Not Recovered/Not Resolved]
  - Haemorrhoids [Unknown]
  - Rectal haemorrhage [Recovered/Resolved]
  - Muscle strain [Unknown]
  - Tendonitis [Recovering/Resolving]
  - Fall [Unknown]
  - Plantar fasciitis [Unknown]
  - Femur fracture [Recovered/Resolved]
  - Muscle strain [Unknown]
  - Soft tissue inflammation [Unknown]
  - Rotator cuff syndrome [Unknown]
  - Mite allergy [Unknown]
  - Ligament sprain [Unknown]
  - Bipolar II disorder [Not Recovered/Not Resolved]
  - Anxiety [Unknown]
  - Fractured sacrum [Recovered/Resolved]
  - Faeces hard [Recovered/Resolved]
  - Arthralgia [Recovering/Resolving]

NARRATIVE: CASE EVENT DATE: 200510
